FAERS Safety Report 9161256 (Version 1)
Quarter: 2013Q1

REPORT INFORMATION
  Report Type: Report from Study
  Country: US (occurrence: US)
  Receive Date: 20130313
  Receipt Date: 20130313
  Transmission Date: 20140127
  Serious: No
  Sender: FDA-Public Use
  Company Number: US-009507513-1303USA004081

PATIENT
  Sex: Male

DRUGS (5)
  1. BOCEPREVIR [Suspect]
     Indication: CHRONIC HEPATITIS C
     Dosage: UNK
     Dates: start: 20110830
  2. PEGINTERFERON ALFA-2A [Suspect]
     Indication: CHRONIC HEPATITIS C
     Dosage: 180 MICROGRAM, QW
     Dates: start: 20110830
  3. COPEGUS [Suspect]
     Indication: CHRONIC HEPATITIS C
     Dosage: 1000 MG, QD
     Dates: start: 20110830
  4. OXYCODONE [Concomitant]
  5. METHADONE HYDROCHLORIDE [Concomitant]

REACTIONS (3)
  - Vomiting [Unknown]
  - Nausea [Unknown]
  - Headache [Unknown]
